FAERS Safety Report 8629944 (Version 2)
Quarter: 2013Q4

REPORT INFORMATION
  Report Type: Spontaneous
  Country: US (occurrence: US)
  Receive Date: 20120622
  Receipt Date: 20131017
  Transmission Date: 20140711
  Serious: No
  Sender: FDA-Public Use
  Company Number: US-ASTRAZENECA-2012SE36352

PATIENT
  Sex: Female

DRUGS (6)
  1. NEXIUM [Suspect]
     Dosage: 1 QD
     Route: 048
     Dates: start: 20030312
  2. NEXIUM [Suspect]
     Route: 048
     Dates: start: 200410
  3. ALTACE [Concomitant]
     Dates: start: 20030227
  4. ALLEGRA [Concomitant]
     Dates: start: 20030312
  5. FOSAMAX [Concomitant]
     Dates: start: 20040810
  6. HCTZ [Concomitant]
     Dates: start: 20040810

REACTIONS (5)
  - Osteoporosis [Unknown]
  - Multiple fractures [Unknown]
  - Foot fracture [Unknown]
  - Lower limb fracture [Unknown]
  - Osteopenia [Unknown]
